FAERS Safety Report 6014127-4 (Version None)
Quarter: 2008Q4

REPORT INFORMATION
  Report Type: 
  Country: None (occurrence: None)
  Receive Date: 20081219
  Receipt Date: 20071219
  Transmission Date: 20090506
  Serious: No
  Sender: FDA-Public Use
  Company Number: A0700804A

PATIENT
  Sex: Male

DRUGS (1)
  1. AVODART [Suspect]
     Route: 048
     Dates: start: 20070101

REACTIONS (3)
  - ABNORMAL DREAMS [None]
  - MICTURITION FREQUENCY DECREASED [None]
  - MIDDLE INSOMNIA [None]
